FAERS Safety Report 8441356-2 (Version None)
Quarter: 2012Q2

REPORT INFORMATION
  Report Type: 
  Country: None (occurrence: None)
  Receive Date: 20120323
  Receipt Date: 20111214
  Transmission Date: 20120825
  Serious: Yes (Disabling)
  Sender: FDA-Public Use
  Company Number: 163-21880-11061999

PATIENT
  Age: 78 Year
  Sex: Male
  Weight: 82.5547 kg

DRUGS (12)
  1. COMPLETE MINERAL (MINERAL SUPPLEMENTS) (UNKNOWN) [Concomitant]
  2. NATURAL FIBER LAXATIVE (POLYCARBOPHIL CALCIUM) (UNKNOWN) [Concomitant]
  3. ASPIRIN [Concomitant]
  4. REVLIMID [Suspect]
     Indication: MULTIPLE MYELOMA
     Dosage: 10 MG, QD X 21 DAYS, PO   10 MG, QD X 28 DAYS EVERY 28 DAYS, PO   10 MG, QOD, PO
     Route: 048
     Dates: start: 20111025
  5. REVLIMID [Suspect]
     Indication: MULTIPLE MYELOMA
     Dosage: 10 MG, QD X 21 DAYS, PO   10 MG, QD X 28 DAYS EVERY 28 DAYS, PO   10 MG, QOD, PO
     Route: 048
     Dates: start: 20110927, end: 20111025
  6. REVLIMID [Suspect]
     Indication: MULTIPLE MYELOMA
     Dosage: 10 MG, QD X 21 DAYS, PO   10 MG, QD X 28 DAYS EVERY 28 DAYS, PO   10 MG, QOD, PO
     Route: 048
     Dates: start: 20110418, end: 20110719
  7. COMPLETE VITAMIN (VITAMINS) (UNKNOWN) [Concomitant]
  8. BACTRIM [Concomitant]
  9. EXTRA STRENGTH TYLENOL (PARACETAMOL) (UNKNOWN) [Concomitant]
  10. DECADRON [Concomitant]
  11. ACYCLOVIR (ACICLOVIR) (UNKNOWN) [Concomitant]
  12. VITAMIN B12 (CYANOCOBALAMIN) (UNKNOWN) [Concomitant]

REACTIONS (4)
  - NEUROPATHY PERIPHERAL [None]
  - PAIN [None]
  - DECREASED ACTIVITY [None]
  - CONSTIPATION [None]
